FAERS Safety Report 23427171 (Version 1)
Quarter: 2024Q1

REPORT INFORMATION
  Report Type: Spontaneous
  Country: US (occurrence: US)
  Receive Date: 20240122
  Receipt Date: 20240122
  Transmission Date: 20240410
  Serious: No
  Sender: FDA-Public Use
  Company Number: US-TORRENT-00013369

PATIENT
  Sex: Female

DRUGS (1)
  1. DAPSONE [Suspect]
     Active Substance: DAPSONE
     Indication: Product used for unknown indication
     Dosage: ONCE A DAY AT NIGHT TIME BUT NOT EVERY DAY
     Route: 065

REACTIONS (4)
  - Acne [Unknown]
  - Product quality issue [Unknown]
  - Face injury [Unknown]
  - Product use issue [Unknown]
